FAERS Safety Report 7773252-8 (Version None)
Quarter: 2011Q3

REPORT INFORMATION
  Report Type: 
  Country: None (occurrence: None)
  Receive Date: 20110922
  Receipt Date: 20110914
  Transmission Date: 20111222
  Serious: Yes (Hospitalization)
  Sender: FDA-Public Use
  Company Number: IT-CEPHALON-2011004964

PATIENT
  Sex: Female

DRUGS (7)
  1. ALLOPURINOL [Concomitant]
  2. MABTHERA [Suspect]
     Route: 042
     Dates: start: 20110905
  3. ASPIRIN [Concomitant]
  4. TAMSULOISIN [Concomitant]
  5. PREDNISONE [Concomitant]
  6. OMEPRAZOLE [Concomitant]
  7. TREANDA [Suspect]
     Route: 042
     Dates: start: 20110905

REACTIONS (4)
  - ASTHENIA [None]
  - PYREXIA [None]
  - DIARRHOEA [None]
  - LISTERIA SEPSIS [None]
